FAERS Safety Report 4986333-9 (Version None)
Quarter: 2006Q2

REPORT INFORMATION
  Report Type: 
  Country: None (occurrence: None)
  Receive Date: 20060428
  Receipt Date: 20060106
  Transmission Date: 20061013
  Serious: Yes (Hospitalization, Other)
  Sender: FDA-Public Use
  Company Number: US-MERCK-0601USA00708

PATIENT
  Age: 52 Year
  Sex: Male
  Weight: 98 kg

DRUGS (3)
  1. VIOXX [Suspect]
     Indication: ARTHRITIS
     Route: 048
     Dates: start: 20000508, end: 20040909
  2. ACETAMINOPHEN AND HYDROCODONE BITARTRATE [Concomitant]
     Route: 065
  3. ULTRAM [Concomitant]
     Route: 065

REACTIONS (8)
  - ARTHROPATHY [None]
  - BACK DISORDER [None]
  - BLOOD CHOLESTEROL INCREASED [None]
  - CORONARY ARTERY DISEASE [None]
  - DEPRESSION [None]
  - HYPERTENSION [None]
  - MYOCARDIAL INFARCTION [None]
  - STRESS [None]
